FAERS Safety Report 5551542-7 (Version None)
Quarter: 2007Q4

REPORT INFORMATION
  Report Type: 
  Country: None (occurrence: None)
  Receive Date: 20071212
  Receipt Date: 20071130
  Transmission Date: 20080405
  Serious: Yes (Other)
  Sender: FDA-Public Use
  Company Number: JP-SANOFI-SYNTHELABO-F01200701425

PATIENT
  Sex: Male
  Weight: 49 kg

DRUGS (7)
  1. TLION [Concomitant]
     Dosage: 20 UNK
     Route: 048
     Dates: start: 20061017, end: 20070205
  2. TENORMIN [Concomitant]
     Dosage: 25 MG
     Route: 048
     Dates: start: 20031031
  3. NATRIX [Concomitant]
     Dosage: 1 MG
     Route: 048
     Dates: start: 20050604
  4. ATELEC [Concomitant]
     Dosage: 10 MG
     Route: 048
     Dates: start: 20060707
  5. WARFARIN POTASSIUM [Concomitant]
     Dosage: 4 MG
     Route: 048
     Dates: start: 20020617, end: 20030215
  6. PANALDINE [Concomitant]
     Dosage: 200 MG
     Route: 048
     Dates: start: 20030315, end: 20031114
  7. CLOPIDOGREL [Suspect]
     Indication: TRANSIENT ISCHAEMIC ATTACK
     Route: 048
     Dates: start: 20061003, end: 20070630

REACTIONS (1)
  - OESOPHAGEAL CARCINOMA [None]
